FAERS Safety Report 13676822 (Version 1)
Quarter: 2017Q2

REPORT INFORMATION
  Report Type: Spontaneous
  Country: FR (occurrence: FR)
  Receive Date: 20170622
  Receipt Date: 20170622
  Transmission Date: 20170830
  Serious: Yes (Death, Hospitalization)
  Sender: FDA-Public Use
  Company Number: FR-ACCORD-052842

PATIENT
  Age: 87 Year
  Sex: Female

DRUGS (15)
  1. ESIDREX [Concomitant]
     Active Substance: HYDROCHLOROTHIAZIDE
     Dosage: STRENGTH: 25 MG?DAILY DOSE OF HALF TABLET IN THE MORNING
  2. EMEND [Suspect]
     Active Substance: APREPITANT
     Indication: PROPHYLAXIS OF NAUSEA AND VOMITING
     Dosage: 5.9524 MG
     Route: 048
     Dates: start: 20160304, end: 20160920
  3. REPAGLINIDE. [Concomitant]
     Active Substance: REPAGLINIDE
     Dosage: STRENGTH: 1 MG?TWO TABLETS IN THE MORNING, ONE TABLET AT NOON AND ONE TABLET IN THE EVENING
  4. PRAVASTATIN. [Concomitant]
     Active Substance: PRAVASTATIN
     Dosage: STRENGTH: 20 MG?DAILY DOSE OF ONE TABLET IN THE EVENING
  5. ESOMEPRAZOLE/ESOMEPRAZOLE MAGNESIUM/ESOMEPRAZOLE SODIUM [Concomitant]
     Dosage: STRENGTH: 20 MG?DAILY DOSE OF ONE TABLET IN THE EVENING
  6. KARDEGIC [Concomitant]
     Active Substance: ASPIRIN LYSINE
     Dosage: STRENGTH: 75 MG?AT THE DAILY DOSE OF ONE BAG AT NOON
  7. LASILIX [Concomitant]
     Active Substance: FUROSEMIDE
     Dosage: STRENGTH: 40 MG?DAILY DOSE OF ONE TABLET IN THE MORNING
  8. ONDANSETRON ACCORD [Suspect]
     Active Substance: ONDANSETRON
     Indication: PROPHYLAXIS OF NAUSEA AND VOMITING
     Dosage: 0.381 MG
     Route: 042
     Dates: start: 20160304, end: 20160920
  9. PROPRANOLOL [Concomitant]
     Active Substance: PROPRANOLOL HYDROCHLORIDE
     Dosage: STRENGTH: 160 MG?THE DAILY DOSE OF ONE TABLET IN THE MORNING
  10. IMOVANE [Concomitant]
     Active Substance: ZOPICLONE
     Dosage: STRENGTH: 3.75 MG?DAILY DOSE OF ONE TABLET IN THE EVENING
  11. EXFORGE [Concomitant]
     Active Substance: AMLODIPINE BESYLATE\VALSARTAN
     Dosage: STRENGTH: 5/80 MG?DAILY DOSE OF ONE TABLET IN THE MORNING
  12. UMULINE [Concomitant]
     Active Substance: INSULIN HUMAN
     Dosage: STRENGTH: 100 UNITES/ML?16 UNITS IN THE MORNING AND IN THE EVENING
  13. KADCYLA [Suspect]
     Active Substance: ADO-TRASTUZUMAB EMTANSINE
     Indication: INVASIVE DUCTAL BREAST CARCINOMA
     Dosage: 11.4286 MG
     Route: 042
     Dates: start: 20160304, end: 20160920
  14. METFORMIN [Concomitant]
     Active Substance: METFORMIN HYDROCHLORIDE
  15. UVEDOSE [Concomitant]
     Active Substance: CHOLECALCIFEROL
     Dosage: STRENGTH: 1,00,000 IU?ONE VIAL IN THE MORNING,EVERY 3 MONTHS

REACTIONS (2)
  - Venoocclusive liver disease [Fatal]
  - Gastrointestinal haemorrhage [Fatal]

NARRATIVE: CASE EVENT DATE: 201609
